FAERS Safety Report 20590585 (Version 1)
Quarter: 2022Q1

REPORT INFORMATION
  Report Type: Report from Study
  Country: PT (occurrence: PT)
  Receive Date: 20220314
  Receipt Date: 20220314
  Transmission Date: 20220424
  Serious: Yes (Death)
  Sender: FDA-Public Use
  Company Number: PT-ROCHE-3015086

PATIENT
  Age: 60 Year
  Sex: Female
  Weight: 63 kg

DRUGS (29)
  1. TRASTUZUMAB [Suspect]
     Active Substance: TRASTUZUMAB
     Indication: HER2 positive breast cancer
     Dosage: MOST RECENT DOSE PRIOR TO THE EVENT: 14/MAY/2021
     Route: 065
     Dates: start: 20190724
  2. LETROZOLE [Suspect]
     Active Substance: LETROZOLE
     Indication: HER2 positive breast cancer
     Dosage: UNK
     Route: 048
     Dates: start: 20200207
  3. PACLITAXEL [Suspect]
     Active Substance: PACLITAXEL
     Indication: HER2 positive breast cancer
     Dosage: UNK
     Route: 065
     Dates: start: 20190724, end: 20200207
  4. METAMIZOL [Concomitant]
     Active Substance: METAMIZOLE SODIUM
     Dosage: ONGOING = NOT CHECKED
     Dates: end: 20211107
  5. PERTUZUMAB [Suspect]
     Active Substance: PERTUZUMAB
     Indication: HER2 positive breast cancer
     Dosage: MOST RECENT DOSE PRIOR TO THE EVENT: 14/MAY/2021
     Route: 065
     Dates: start: 20190724
  6. ENOXAPARIN [Concomitant]
     Active Substance: ENOXAPARIN
     Indication: Cerebrovascular accident
     Dosage: ONGOING = NOT CHECKED
     Dates: start: 20211011, end: 20211018
  7. BISOPROLOL [Concomitant]
     Active Substance: BISOPROLOL
     Indication: Cerebrovascular accident
     Dosage: ONGOING = NOT CHECKED
     Dates: end: 20211107
  8. BISOPROLOL [Concomitant]
     Active Substance: BISOPROLOL
     Dosage: ONGOING = NOT CHECKED
     Dates: start: 20211012, end: 20211022
  9. PANTOPRAZOLE [Concomitant]
     Active Substance: PANTOPRAZOLE
     Indication: Cerebrovascular accident
     Dosage: ONGOING = NOT CHECKED
     Dates: start: 20211012, end: 20211022
  10. METOCLOPRAMIDE [Concomitant]
     Active Substance: METOCLOPRAMIDE
     Dosage: ONGOING = NOT CHECKED
     Dates: end: 20211107
  11. ZOLPIDEM [Concomitant]
     Active Substance: ZOLPIDEM TARTRATE
     Dosage: ONGOING = NOT CHECKED
     Dates: end: 20211107
  12. ZOLEDRONIC ACID [Concomitant]
     Active Substance: ZOLEDRONIC ACID
     Dosage: ONGOING = NOT CHECKED
     Dates: start: 20190723, end: 20211107
  13. PERINDOPRIL [Concomitant]
     Active Substance: PERINDOPRIL
     Indication: Cerebrovascular accident
     Dosage: ONGOING = NOT CHECKED
     Dates: start: 20191129, end: 20211107
  14. PERINDOPRIL [Concomitant]
     Active Substance: PERINDOPRIL
     Dosage: ONGOING = NOT CHECKED
     Dates: start: 20211012, end: 20211022
  15. TRAMADOL [Concomitant]
     Active Substance: TRAMADOL
     Dosage: ONGOING = NOT CHECKED
     Dates: end: 20211107
  16. TRAMADOL [Concomitant]
     Active Substance: TRAMADOL
     Dosage: ONGOING = NOT CHECKED
     Dates: end: 20211107
  17. PANTOPRAZOLE SODIUM [Concomitant]
     Active Substance: PANTOPRAZOLE SODIUM
     Dosage: ONGOING = NOT CHECKED
     Dates: end: 20211107
  18. LOPERAMIDE [Concomitant]
     Active Substance: LOPERAMIDE
     Dosage: ONGOING = NOT CHECKED
     Dates: end: 20211107
  19. PREGABALIN [Concomitant]
     Active Substance: PREGABALIN
     Dosage: ONGOING = NOT CHECKED
     Dates: end: 20211107
  20. AMLODIPINE [Concomitant]
     Active Substance: AMLODIPINE BESYLATE
     Indication: Cerebrovascular accident
     Dosage: ONGOING = NOT CHECKED
     Dates: start: 20211011, end: 20211013
  21. ROSUVASTATIN [Concomitant]
     Active Substance: ROSUVASTATIN
     Indication: Cerebrovascular accident
     Dosage: ONGOING = NOT CHECKED
     Dates: start: 20211013, end: 20211021
  22. DULOXETINE [Concomitant]
     Active Substance: DULOXETINE
     Dosage: ONGOING = NOT CHECKED
     Dates: start: 20200522, end: 20211107
  23. LACTULOSE [Concomitant]
     Active Substance: LACTULOSE
     Dosage: ONGOING = NOT CHECKED
     Dates: end: 20211107
  24. ASPIRIN [Concomitant]
     Active Substance: ASPIRIN
     Indication: Cerebrovascular accident
     Dosage: ONGOING = NOT CHECKED
     Dates: start: 20211012, end: 20211022
  25. ACETAMINOPHEN [Concomitant]
     Active Substance: ACETAMINOPHEN
     Dosage: ONGOING = NOT CHECKED
     Dates: end: 20211107
  26. DEXAMETHASONE [Concomitant]
     Active Substance: DEXAMETHASONE
     Dosage: ONGOING = NOT CHECKED
     Dates: end: 20211107
  27. FUROSEMIDE [Concomitant]
     Active Substance: FUROSEMIDE
     Indication: Cerebrovascular accident
     Dosage: ONGOING = NOT CHECKED
     Dates: start: 20211012, end: 20211022
  28. POLYETHYLENE GLYCOLS [Concomitant]
     Active Substance: POLYETHYLENE GLYCOLS
     Dosage: ONGOING = NOT CHECKED
     Dates: start: 20200124, end: 20211107
  29. CALCIUM D GLUCARATE [Concomitant]
     Dosage: ONGOING = NOT CHECKED
     Dates: end: 20211107

REACTIONS (1)
  - Acute kidney injury [Fatal]

NARRATIVE: CASE EVENT DATE: 20211029
